FAERS Safety Report 4324446-5 (Version None)
Quarter: 2004Q1

REPORT INFORMATION
  Report Type: 
  Country: None (occurrence: None)
  Receive Date: 20040326
  Receipt Date: 20040213
  Transmission Date: 20041129
  Serious: No
  Sender: FDA-Public Use
  Company Number: US-GLAXOSMITHKLINE-A0498159A

PATIENT
  Age: 79 Year
  Sex: Male

DRUGS (10)
  1. ADVAIR DISKUS 100/50 [Suspect]
     Indication: WHEEZING
     Dosage: 2PUFF TWICE PER DAY
     Route: 055
     Dates: start: 20040212
  2. MAXAIR [Concomitant]
  3. LASIX [Concomitant]
  4. FUROSEMIDE [Concomitant]
  5. ASPIRIN [Concomitant]
  6. PENTOXIFYLLINE [Concomitant]
  7. LOPRESSOR [Concomitant]
  8. POTASSIUM [Concomitant]
  9. NITROGLYCERIN [Concomitant]
  10. MULTI-VITAMIN [Concomitant]

REACTIONS (2)
  - OVERDOSE [None]
  - WHEEZING [None]
